FAERS Safety Report 8450130-2 (Version None)
Quarter: 2012Q2

REPORT INFORMATION
  Report Type: 
  Country: None (occurrence: None)
  Receive Date: 20120620
  Receipt Date: 20120612
  Transmission Date: 20120825
  Serious: Yes (Other)
  Sender: FDA-Public Use
  Company Number: US-US-EMD SERONO, INC.-7140341

PATIENT
  Sex: Female
  Weight: 54 kg

DRUGS (1)
  1. REBIF [Suspect]
     Indication: MULTIPLE SCLEROSIS
     Route: 058
     Dates: start: 20060811

REACTIONS (5)
  - MULTIPLE SCLEROSIS RELAPSE [None]
  - INJECTION SITE DISCOLOURATION [None]
  - NAUSEA [None]
  - CHOLECYSTECTOMY [None]
  - INJECTION SITE ERYTHEMA [None]
